FAERS Safety Report 21070936 (Version 1)
Quarter: 2022Q3

REPORT INFORMATION
  Report Type: Report from Study
  Country: GB (occurrence: GB)
  Receive Date: 20220712
  Receipt Date: 20220712
  Transmission Date: 20221027
  Serious: Yes (Other)
  Sender: FDA-Public Use
  Company Number: GB-BRISTOL-MYERS SQUIBB COMPANY-2022-055829

PATIENT
  Sex: Female
  Weight: 76.8 kg

DRUGS (8)
  1. AZACITIDINE [Suspect]
     Active Substance: AZACITIDINE
     Indication: Myelodysplastic syndrome
     Route: 048
     Dates: start: 20211025, end: 20220516
  2. ACYCLOVIR [Concomitant]
     Active Substance: ACYCLOVIR
     Indication: Prophylaxis
     Dosage: 800 (UNITS NOT SPECIFIED)1 (UNITS NOT SPECIFIED); 1 (
     Route: 065
     Dates: start: 20210726
  3. PENICILLIN [Concomitant]
     Active Substance: PENICILLIN
     Indication: Prophylaxis
     Dosage: 1 (UNITS NOT SPECIFIED); 1 (FREQUENCY NOT PROVIDED);  LAST DOSE: 500
     Route: 065
     Dates: start: 20210822
  4. ONDANSETRON [Concomitant]
     Active Substance: ONDANSETRON
     Indication: Nausea
     Dosage: 1 (UNITS NOT SPECIFIED); FREQUENCY:8;  LAST DOSE: 8
     Route: 065
     Dates: start: 20210804
  5. ONDANSETRON [Concomitant]
     Active Substance: ONDANSETRON
     Indication: Vomiting
  6. SEA WATER [Concomitant]
     Active Substance: SEA WATER
     Indication: Sinusitis
     Dosage: 1-2 SPRAYS;97 (UNITS NOT SPECIFIED); FREQUENCY:8;  LAST DOSE: 8
     Route: 065
     Dates: start: 20220419
  7. Neilmed [Concomitant]
     Indication: Sinusitis
     Dosage: 99 (UNITS NOT SPECIFIED); FREQUENCY:8
     Route: 065
     Dates: start: 20220419
  8. VITAMINS [Concomitant]
     Active Substance: VITAMINS
     Indication: Vitamin supplementation
     Dosage: 97 (UNITS NOT SPECIFIED); FREQUENCY:6
     Route: 065
     Dates: start: 20211101

REACTIONS (1)
  - Hypertransaminasaemia [Recovering/Resolving]

NARRATIVE: CASE EVENT DATE: 20220608
